FAERS Safety Report 11627966 (Version 1)
Quarter: 2015Q4

REPORT INFORMATION
  Report Type: Spontaneous
  Country: US (occurrence: None)
  Receive Date: 20151013
  Receipt Date: 20151013
  Transmission Date: 20160304
  Serious: Yes (Other)
  Sender: FDA-Public Use
  Company Number: None

PATIENT
  Age: 80 Year
  Sex: Female

DRUGS (8)
  1. POTASSIUM CHLORIDE. [Concomitant]
     Active Substance: POTASSIUM CHLORIDE
  2. PAROXETINE [Concomitant]
     Active Substance: PAROXETINE\PAROXETINE HYDROCHLORIDE
  3. ALPRAZOLAM. [Concomitant]
     Active Substance: ALPRAZOLAM
  4. TRIAMTERENE AND HYDROCHLOROTHIAZIDE [Concomitant]
     Active Substance: HYDROCHLOROTHIAZIDE\TRIAMTERENE
  5. AFINITOR [Suspect]
     Active Substance: EVEROLIMUS
     Indication: BREAST CANCER
     Route: 048
  6. DULOXETINE. [Concomitant]
     Active Substance: DULOXETINE
  7. LETROZOLE. [Concomitant]
     Active Substance: LETROZOLE
  8. OCTREOTIDE. [Concomitant]
     Active Substance: OCTREOTIDE

REACTIONS (6)
  - Onychoclasis [None]
  - Haemorrhage [None]
  - Insomnia [None]
  - Headache [None]
  - Rash pustular [None]
  - Pruritus generalised [None]

NARRATIVE: CASE EVENT DATE: 20150914
